FAERS Safety Report 9749929 (Version 1)
Quarter: 2013Q4

REPORT INFORMATION
  Report Type: Spontaneous
  Country: US (occurrence: US)
  Receive Date: 20131212
  Receipt Date: 20131212
  Transmission Date: 20140711
  Serious: No
  Sender: FDA-Public Use
  Company Number: US-PFIZER INC-2013355541

PATIENT
  Age: 85 Year
  Sex: Female
  Weight: 58.96 kg

DRUGS (2)
  1. LYRICA [Suspect]
     Indication: PAIN IN EXTREMITY
     Dosage: 75 MG, 1X/DAY
     Dates: start: 20131202, end: 20131204
  2. LYRICA [Suspect]
     Indication: BACK PAIN

REACTIONS (3)
  - Fall [Unknown]
  - Dizziness [Unknown]
  - Local swelling [Unknown]
